FAERS Safety Report 18053471 (Version 1)
Quarter: 2020Q3

REPORT INFORMATION
  Report Type: Spontaneous
  Country: IT (occurrence: IT)
  Receive Date: 20200722
  Receipt Date: 20200722
  Transmission Date: 20201103
  Serious: Yes (Other)
  Sender: FDA-Public Use
  Company Number: IT-MYLANLABS-2020M1066394

PATIENT
  Age: 88 Year
  Sex: Female

DRUGS (2)
  1. QUETIAPINE. [Suspect]
     Active Substance: QUETIAPINE
     Indication: SENILE DEMENTIA
     Dosage: 125 MILLIGRAM, QD
     Route: 048
     Dates: start: 20200711
  2. PROMAZINE [Suspect]
     Active Substance: PROMAZINE
     Indication: PSYCHOMOTOR HYPERACTIVITY
     Dosage: 25 GTT DROPS, TOTAL
     Route: 048
     Dates: start: 20200711

REACTIONS (3)
  - Off label use [Recovered/Resolved]
  - Sopor [Recovered/Resolved]
  - Therapy change [Recovered/Resolved]

NARRATIVE: CASE EVENT DATE: 20200712
